FAERS Safety Report 7518334-0 (Version None)
Quarter: 2011Q2

REPORT INFORMATION
  Report Type: 
  Country: None (occurrence: None)
  Receive Date: 20110601
  Receipt Date: 20110601
  Transmission Date: 20111010
  Serious: No
  Sender: FDA-Public Use
  Company Number: None

PATIENT
  Sex: Male
  Weight: 97.5234 kg

DRUGS (2)
  1. PEGASYS [Suspect]
     Dosage: 180MCG ONCE WEEKLY SQ
     Route: 058
     Dates: start: 20110308, end: 20110415
  2. RIBASPHERE [Suspect]
     Dosage: 400MG BID ORALLY
     Route: 048
     Dates: start: 20110308, end: 20110415

REACTIONS (2)
  - LETHARGY [None]
  - MOOD SWINGS [None]
